FAERS Safety Report 4703699-5 (Version None)
Quarter: 2005Q2

REPORT INFORMATION
  Report Type: 
  Country: None (occurrence: None)
  Receive Date: 20050630
  Receipt Date: 20050622
  Transmission Date: 20051028
  Serious: Yes (Hospitalization)
  Sender: FDA-Public Use
  Company Number: AT-BRISTOL-MYERS SQUIBB COMPANY-13011606

PATIENT
  Age: 22 Year
  Sex: Male

DRUGS (3)
  1. ABILIFY [Suspect]
     Indication: SCHIZOAFFECTIVE DISORDER
     Route: 048
     Dates: start: 20050120, end: 20050127
  2. LAMICTAL [Concomitant]
     Route: 048
  3. SOLIAN [Concomitant]
     Dosage: DECREASED TO 400 MG/DAY FROM 25-JAN-2005 TO 26-JAN-2005, INCREASED TO 600 MG/DAY ON 27-JAN-2005
     Route: 048

REACTIONS (5)
  - AGITATION [None]
  - INSOMNIA [None]
  - LOGORRHOEA [None]
  - MANIA [None]
  - THINKING ABNORMAL [None]
